FAERS Safety Report 7591438-2 (Version None)
Quarter: 2011Q3

REPORT INFORMATION
  Report Type: 
  Country: None (occurrence: None)
  Receive Date: 20110701
  Receipt Date: 20110701
  Transmission Date: 20111222
  Serious: Yes (Hospitalization)
  Sender: FDA-Public Use
  Company Number: None

PATIENT
  Age: 38 Year
  Sex: Male
  Weight: 70.3075 kg

DRUGS (1)
  1. TORADOL [Suspect]
     Indication: MUSCULOSKELETAL CHEST PAIN
     Dosage: 30MG ONCE IV
     Route: 042
     Dates: start: 20110421, end: 20110421

REACTIONS (1)
  - RENAL FAILURE [None]
